FAERS Safety Report 10579468 (Version 2)
Quarter: 2014Q4

REPORT INFORMATION
  Report Type: Report from Study
  Country: UA (occurrence: UA)
  Receive Date: 20141112
  Receipt Date: 20141112
  Transmission Date: 20150529
  Serious: Yes (Hospitalization)
  Sender: FDA-Public Use
  Company Number: UA-BRISTOL-MYERS SQUIBB COMPANY-15433121

PATIENT
  Age: 69 Year
  Sex: Male

DRUGS (6)
  1. PREDUCTAL [Concomitant]
     Active Substance: TRIMETAZIDINE DIHYDROCHLORIDE
     Dates: start: 20101206
  2. APIXABAN [Suspect]
     Active Substance: APIXABAN
     Indication: THROMBOSIS PROPHYLAXIS
     Dosage: 5MG?INTERRUPTED ON 9JAN11?RESTARTED ON 15JAN2011
     Route: 048
     Dates: start: 20101105
  3. NORMODIPINE [Concomitant]
     Dates: start: 20090204
  4. ASPARAGINASE [Concomitant]
     Active Substance: ASPARAGINASE
     Dates: start: 20101206, end: 20101217
  5. HEPTRAL [Concomitant]
     Active Substance: ADEMETIONINE
     Dates: start: 20101206, end: 20101217
  6. BERLIPRIL [Concomitant]
     Dates: start: 20090204

REACTIONS (3)
  - Vascular encephalopathy [Unknown]
  - Osteoarthritis [Recovered/Resolved]
  - Atrial fibrillation [Recovered/Resolved]

NARRATIVE: CASE EVENT DATE: 20101206
